FAERS Safety Report 6233564-6 (Version None)
Quarter: 2009Q2

REPORT INFORMATION
  Report Type: 
  Country: None (occurrence: None)
  Receive Date: 20090617
  Receipt Date: 20090610
  Transmission Date: 20091009
  Serious: Yes (Hospitalization)
  Sender: FDA-Public Use
  Company Number: US-ABBOTT-09P-163-0579008-00

PATIENT
  Sex: Male
  Weight: 67.192 kg

DRUGS (6)
  1. HUMIRA [Suspect]
     Indication: CROHN'S DISEASE
     Route: 058
     Dates: start: 20090522, end: 20090522
  2. HUMIRA [Suspect]
     Route: 058
     Dates: start: 20090606, end: 20090606
  3. HUMIRA [Suspect]
     Route: 058
  4. TOTAL PARENTAREL NUTRITION [Concomitant]
     Indication: NUTRITIONAL SUPPORT
  5. CODEINE [Concomitant]
     Indication: PAIN
  6. OPIUM [Concomitant]
     Indication: PAIN

REACTIONS (3)
  - HAEMORRHAGE [None]
  - INJECTION SITE RASH [None]
  - UNEVALUABLE EVENT [None]
